FAERS Safety Report 20015649 (Version 1)
Quarter: 2021Q4

REPORT INFORMATION
  Report Type: Spontaneous
  Country: US (occurrence: None)
  Receive Date: 20211101
  Receipt Date: 20211101
  Transmission Date: 20220304
  Serious: Yes (Life-Threatening)
  Sender: FDA-Public Use
  Company Number: None

PATIENT
  Age: 73 Year
  Sex: Male

DRUGS (1)
  1. DALBAVANCIN [Suspect]
     Active Substance: DALBAVANCIN
     Indication: Osteomyelitis
     Dosage: OTHER STRENGTH : 500MG/VIL;?FREQUENCY : WEEKLY;?OTHER ROUTE : IV;?
     Route: 050
     Dates: start: 20210916, end: 20210916

REACTIONS (1)
  - Hypertension [None]

NARRATIVE: CASE EVENT DATE: 20210916
